FAERS Safety Report 12954306 (Version 1)
Quarter: 2016Q4

REPORT INFORMATION
  Report Type: Spontaneous
  Country: DE (occurrence: DE)
  Receive Date: 20161118
  Receipt Date: 20161118
  Transmission Date: 20170207
  Serious: Yes (Life-Threatening, Hospitalization, Disabling, Other)
  Sender: FDA-Public Use
  Company Number: DE-AMGEN-DEUSP2016160819

PATIENT
  Age: 23 Year
  Sex: Female

DRUGS (3)
  1. ENBREL [Suspect]
     Active Substance: ETANERCEPT
     Dosage: 50 MG, UNK
     Route: 058
     Dates: start: 201003, end: 201601
  2. ENBREL [Suspect]
     Active Substance: ETANERCEPT
     Indication: JUVENILE IDIOPATHIC ARTHRITIS
     Dosage: 50 MG, UNK
     Route: 058
     Dates: start: 200203, end: 200703
  3. HUMIRA [Suspect]
     Active Substance: ADALIMUMAB
     Indication: IRIDOCYCLITIS
     Dosage: 40 MG, CYCLIC (EVERY 2 WEEKS)
     Route: 058

REACTIONS (1)
  - Diffuse large B-cell lymphoma [Not Recovered/Not Resolved]

NARRATIVE: CASE EVENT DATE: 201608
